FAERS Safety Report 15638798 (Version 1)
Quarter: 2018Q4

REPORT INFORMATION
  Report Type: Spontaneous
  Country: US (occurrence: US)
  Receive Date: 20181120
  Receipt Date: 20181120
  Transmission Date: 20190205
  Serious: Yes (Hospitalization)
  Sender: FDA-Public Use
  Company Number: US-RECKITT BENCKISER HEALTHCARE INT LIMITED-RB-93378-2018

PATIENT
  Sex: Male

DRUGS (2)
  1. IBUPROFEN. [Suspect]
     Active Substance: IBUPROFEN
     Indication: COUGH
     Dosage: UNK
     Route: 065
  2. DEXTROMETHORPHAN HYDROBROMIDE GUAIFENESIN [Suspect]
     Active Substance: DEXTROMETHORPHAN HYDROBROMIDE\GUAIFENESIN
     Indication: COUGH
     Dosage: UNK
     Route: 065

REACTIONS (11)
  - Pain [Recovering/Resolving]
  - Rash [Unknown]
  - Fixed eruption [Recovered/Resolved]
  - Skin erosion [Unknown]
  - Skin lesion [Recovering/Resolving]
  - Macule [Unknown]
  - Skin hyperpigmentation [Not Recovered/Not Resolved]
  - Rash generalised [Recovered/Resolved]
  - Dermatitis [Unknown]
  - Blister [Unknown]
  - Erythema [Recovering/Resolving]
